FAERS Safety Report 7357146-8 (Version None)
Quarter: 2011Q1

REPORT INFORMATION
  Report Type: 
  Country: None (occurrence: None)
  Receive Date: 20110311
  Receipt Date: 20110311
  Transmission Date: 20110831
  Serious: No
  Sender: FDA-Public Use
  Company Number: None

PATIENT
  Age: 69 Year
  Sex: Male

DRUGS (4)
  1. OMEPRAZOLE [Concomitant]
  2. DEXAMETHASONE [Concomitant]
  3. REVLIMID [Suspect]
     Indication: MYELOFIBROSIS
     Dosage: 15MG QD 21D/28D ORALLY
     Route: 048
  4. ASPIRIN [Concomitant]

REACTIONS (4)
  - ASTHENIA [None]
  - PARAESTHESIA [None]
  - DIZZINESS [None]
  - CYANOSIS [None]
